FAERS Safety Report 4864392-1 (Version None)
Quarter: 2005Q4

REPORT INFORMATION
  Report Type: 
  Country: None (occurrence: None)
  Receive Date: 20051222
  Receipt Date: 20040413
  Transmission Date: 20060501
  Serious: Yes (Death, Hospitalization)
  Sender: FDA-Public Use
  Company Number: GB-BRISTOL-MYERS SQUIBB COMPANY-12557989

PATIENT
  Sex: Female

DRUGS (1)
  1. TAXOL [Suspect]
     Indication: BREAST CANCER
     Dosage: 1160 MG FROM 27-NOV-03 TO 23-FEB-04
     Route: 042
     Dates: start: 20040202, end: 20040202

REACTIONS (5)
  - CEREBRAL DISORDER [None]
  - DIARRHOEA [None]
  - NAUSEA [None]
  - SUPRAVENTRICULAR TACHYCARDIA [None]
  - VOMITING [None]
